FAERS Safety Report 25787237 (Version 1)
Quarter: 2025Q3

REPORT INFORMATION
  Report Type: Report from Study
  Country: CO (occurrence: CO)
  Receive Date: 20250910
  Receipt Date: 20250910
  Transmission Date: 20251021
  Serious: Yes (Hospitalization, Other)
  Sender: ASTELLAS
  Company Number: CO-ASTELLAS-2024-AER-024130

PATIENT
  Age: 30 Year
  Sex: Male
  Weight: 65 kg

DRUGS (6)
  1. TACROLIMUS [Suspect]
     Active Substance: TACROLIMUS
     Indication: Renal transplant
     Dosage: PROGRAF  XL 0.5 MG (1 CAPSULE), PROGRAF XL 3 MG (1 CAPSULE), AND PROGRAF XL 5 MG (1 CAPSULE) DAILY D
     Route: 048
     Dates: end: 20241115
  2. TACROLIMUS [Suspect]
     Active Substance: TACROLIMUS
     Dosage: PROGRAF  XL 0.5 MG (1 CAPSULE), PROGRAF XL 3 MG (1 CAPSULE), AND PROGRAF XL 5 MG (1 CAPSULE) DAILY D
     Route: 048
  3. TACROLIMUS [Suspect]
     Active Substance: TACROLIMUS
     Indication: Renal transplant
     Dosage: PROGRAF  XL 0.5 MG (1 CAPSULE), PROGRAF XL 3 MG (1 CAPSULE), AND PROGRAF XL 5 MG (1 CAPSULE): DAILY
     Route: 048
     Dates: end: 20241115
  4. TACROLIMUS [Suspect]
     Active Substance: TACROLIMUS
     Dosage: PROGRAF  XL 0.5 MG (1 CAPSULE), PROGRAF XL 3 MG (1 CAPSULE), AND PROGRAF XL 5 MG (1 CAPSULE): DAILY
     Route: 048
  5. TACROLIMUS [Suspect]
     Active Substance: TACROLIMUS
     Indication: Renal transplant
     Dosage: PROGRAF  XL 0.5 MG (1 CAPSULE), PROGRAF XL 3 MG (1 CAPSULE), AND PROGRAF XL 5 MG (1 CAPSULE): DAILY
     Route: 048
     Dates: end: 20241115
  6. TACROLIMUS [Suspect]
     Active Substance: TACROLIMUS
     Dosage: PROGRAF  XL 0.5 MG (1 CAPSULE), PROGRAF XL 3 MG (1 CAPSULE), AND PROGRAF XL 5 MG (1 CAPSULE): DAILY
     Route: 048

REACTIONS (6)
  - Discomfort [Recovering/Resolving]
  - Fatigue [Recovering/Resolving]
  - Headache [Recovering/Resolving]
  - Diarrhoea [Recovering/Resolving]
  - Vomiting [Recovering/Resolving]
  - Weight decreased [Unknown]
